FAERS Safety Report 8402159 (Version 2)
Quarter: 2012Q4

REPORT INFORMATION
  Report Type: 
  Country: US (occurrence: US)
  Receive Date: 20120213
  Receipt Date: 20121224
  Transmission Date: 20130627
  Serious: Yes (Other)
  Sender: FDA-Public Use
  Company Number: US-US-EMD SERONO, INC.-7111314

PATIENT
  Age: 32 Year
  Sex: Male

DRUGS (2)
  1. REBIF [Suspect]
     Indication: MULTIPLE SCLEROSIS
     Route: 058
     Dates: start: 20111217
  2. INSULIN [Concomitant]
     Indication: PRODUCT USED FOR UNKNOWN INDICATION

REACTIONS (8)
  - Violence-related symptom [Recovering/Resolving]
  - Suicidal ideation [Recovering/Resolving]
  - Agitation [Unknown]
  - Memory impairment [Unknown]
  - Balance disorder [Unknown]
  - Stress [Unknown]
  - Chills [Unknown]
  - Fatigue [Unknown]
